FAERS Safety Report 19482116 (Version 1)
Quarter: 2021Q3

REPORT INFORMATION
  Report Type: Spontaneous
  Country: US (occurrence: US)
  Receive Date: 20210701
  Receipt Date: 20210701
  Transmission Date: 20211014
  Serious: Yes (Life-Threatening, Hospitalization, Other)
  Sender: FDA-Public Use
  Company Number: US-HIKMA PHARMACEUTICALS USA INC.-US-H14001-21-54771

PATIENT
  Age: 59 Year
  Sex: Male

DRUGS (2)
  1. FLECAINIDE [Suspect]
     Active Substance: FLECAINIDE
     Indication: ATRIAL FIBRILLATION
     Route: 065
     Dates: start: 2018, end: 201902
  2. RIVAROXABAN [Concomitant]
     Active Substance: RIVAROXABAN
     Indication: ANTICOAGULANT THERAPY
     Dosage: UNKNOWN
     Route: 065

REACTIONS (6)
  - Ventricular fibrillation [Recovered/Resolved]
  - Bundle branch block left [Recovered/Resolved]
  - Tachycardia [Recovered/Resolved]
  - Respiratory distress [Recovered/Resolved]
  - Atrial flutter [Recovered/Resolved]
  - Ventricular arrhythmia [Recovered/Resolved]

NARRATIVE: CASE EVENT DATE: 201902
